FAERS Safety Report 20379163 (Version 1)
Quarter: 2022Q1

REPORT INFORMATION
  Report Type: Spontaneous
  Country: JP (occurrence: JP)
  Receive Date: 20220126
  Receipt Date: 20220126
  Transmission Date: 20220423
  Serious: Yes (Hospitalization)
  Sender: FDA-Public Use
  Company Number: JP-Eisai-202109507_LEN-TMC_P_1

PATIENT
  Age: 67 Year
  Sex: Male

DRUGS (22)
  1. LENVIMA [Suspect]
     Active Substance: LENVATINIB
     Indication: Malignant neoplasm of thymus
     Route: 048
     Dates: start: 20211103, end: 20211110
  2. LENVIMA [Suspect]
     Active Substance: LENVATINIB
     Route: 048
     Dates: start: 20211202, end: 20211208
  3. LENVIMA [Suspect]
     Active Substance: LENVATINIB
     Dosage: 4 MG, 5 DAYS ON/2 DAYS OFF
     Route: 048
     Dates: start: 20211220
  4. CARVEDILOL [Concomitant]
     Active Substance: CARVEDILOL
     Indication: Product used for unknown indication
     Route: 048
  5. ANAGLIPTIN [Concomitant]
     Active Substance: ANAGLIPTIN
     Indication: Product used for unknown indication
     Route: 048
  6. AMLODIPINE [Concomitant]
     Active Substance: AMLODIPINE BESYLATE
     Indication: Product used for unknown indication
     Route: 048
  7. SILODOSIN [Concomitant]
     Active Substance: SILODOSIN
     Indication: Product used for unknown indication
     Route: 048
  8. NEXIUM [Concomitant]
     Active Substance: ESOMEPRAZOLE MAGNESIUM
     Indication: Product used for unknown indication
     Route: 048
  9. CALCIUM CARBONATE\CHOLECALCIFEROL\MAGNESIUM CARBONATE [Concomitant]
     Active Substance: CALCIUM CARBONATE\CHOLECALCIFEROL\MAGNESIUM CARBONATE
     Indication: Product used for unknown indication
     Route: 048
  10. AMBROXOL HYDROCHLORIDE OD [Concomitant]
     Indication: Product used for unknown indication
     Route: 048
  11. URSODIOL [Concomitant]
     Active Substance: URSODIOL
     Indication: Product used for unknown indication
     Route: 048
  12. BENZETHONIUM CHLORIDE [Concomitant]
     Active Substance: BENZETHONIUM CHLORIDE
     Indication: Product used for unknown indication
     Dosage: DOSE AND FREQUENCY UNKNOWN
     Route: 002
  13. BETAMETHASONE\CALCIPOTRIENE [Concomitant]
     Active Substance: BETAMETHASONE\CALCIPOTRIENE
     Indication: Product used for unknown indication
     Dosage: DOSE UNKNOWN, 1-2 TIMES/DAY
     Route: 061
  14. HEPARINOID [Concomitant]
     Indication: Product used for unknown indication
     Dosage: DOSE UNKNOWN, 1-3 TIMES/DAY
     Route: 061
  15. GENTAMICIN SULFATE [Concomitant]
     Active Substance: GENTAMICIN SULFATE
     Indication: Product used for unknown indication
     Dosage: DOSE UNKNOWN, ONCE A DAY
     Route: 061
  16. RIFAXIMIN [Concomitant]
     Active Substance: RIFAXIMIN
     Indication: Hepatic encephalopathy
     Dosage: DOSE AND FREQUENCY UNKNOWN
     Route: 048
  17. LACTULOSE [Concomitant]
     Active Substance: LACTULOSE
     Indication: Hepatic encephalopathy
     Dosage: DOSE AND FREQUENCY UNKNOWN
     Route: 048
  18. AMINO ACIDS, SOURCE UNSPECIFIED [Concomitant]
     Active Substance: AMINO ACIDS, SOURCE UNSPECIFIED
     Indication: Hepatic encephalopathy
     Dosage: DOSE AND FREQUENCY UNKNOWN
     Route: 041
     Dates: start: 20211110, end: 20211119
  19. AMINO ACIDS, SOURCE UNSPECIFIED [Concomitant]
     Active Substance: AMINO ACIDS, SOURCE UNSPECIFIED
     Dosage: DOSE AND FREQUENCY UNKNOWN
     Route: 048
     Dates: start: 20211120, end: 20211208
  20. AMINO ACIDS, SOURCE UNSPECIFIED [Concomitant]
     Active Substance: AMINO ACIDS, SOURCE UNSPECIFIED
     Dosage: DOSE AND FREQUENCY UNKNOWN
     Route: 041
     Dates: start: 20211209, end: 20211213
  21. AMINO ACIDS, SOURCE UNSPECIFIED [Concomitant]
     Active Substance: AMINO ACIDS, SOURCE UNSPECIFIED
     Dosage: DOSE AND FREQUENCY UNKNOWN
     Route: 048
     Dates: start: 20211214
  22. TEGAFUR [Concomitant]
     Active Substance: TEGAFUR
     Indication: Malignant neoplasm of thymus
     Dosage: DOSE AND FREQUENCY UNKNOWN
     Route: 065
     Dates: start: 202008, end: 202111

REACTIONS (2)
  - Hepatic encephalopathy [Recovering/Resolving]
  - Palmar-plantar erythrodysaesthesia syndrome [Recovered/Resolved]

NARRATIVE: CASE EVENT DATE: 20211110
